FAERS Safety Report 8534688-0 (Version None)
Quarter: 2012Q3

REPORT INFORMATION
  Report Type: 
  Country: None (occurrence: None)
  Receive Date: 20120724
  Receipt Date: 20120717
  Transmission Date: 20120928
  Serious: Yes (Death)
  Sender: FDA-Public Use
  Company Number: US-GLAXOSMITHKLINE-A0985734A

PATIENT
  Age: 55 Year
  Sex: Female

DRUGS (4)
  1. OXYCODONE HCL [Concomitant]
  2. DECADRON [Concomitant]
  3. TYKERB [Suspect]
     Indication: PRODUCT USED FOR UNKNOWN INDICATION
     Dosage: 1000MG PER DAY
     Route: 048
  4. MS CONTIN [Concomitant]

REACTIONS (1)
  - DEATH [None]
